FAERS Safety Report 4405035-0 (Version None)
Quarter: 2004Q3

REPORT INFORMATION
  Report Type: 
  Country: None (occurrence: None)
  Receive Date: 20040715
  Receipt Date: 20040706
  Transmission Date: 20050211
  Serious: Yes (Other)
  Sender: FDA-Public Use
  Company Number: BLOC000811

PATIENT
  Age: 52 Year
  Sex: Male

DRUGS (2)
  1. MYOBLOC [Suspect]
     Indication: SALIVARY HYPERSECRETION
     Dosage: INTRAMUSCULAR
     Route: 030
     Dates: start: 20030601
  2. NEURONTIN [Concomitant]

REACTIONS (4)
  - ARTHRALGIA [None]
  - DRUG INEFFECTIVE [None]
  - MUSCLE TIGHTNESS [None]
  - PAIN IN EXTREMITY [None]
